FAERS Safety Report 4583685-9 (Version None)
Quarter: 2005Q1

REPORT INFORMATION
  Report Type: 
  Country: None (occurrence: None)
  Receive Date: 20050216
  Receipt Date: 20050204
  Transmission Date: 20050727
  Serious: Yes (Hospitalization)
  Sender: FDA-Public Use
  Company Number: IT-BRISTOL-MYERS SQUIBB COMPANY-12849857

PATIENT
  Age: 57 Year
  Sex: Male

DRUGS (6)
  1. ACETYLSALICYLIC ACID SRT [Suspect]
     Indication: ACUTE MYOCARDIAL INFARCTION
     Route: 048
     Dates: start: 20041223, end: 20041228
  2. PRAVASELECT [Suspect]
     Indication: HYPERCHOLESTEROLAEMIA
     Route: 048
     Dates: start: 20041223, end: 20041228
  3. TICLID [Suspect]
     Indication: ACUTE MYOCARDIAL INFARCTION
     Route: 048
     Dates: start: 20041223, end: 20041228
  4. TRIATEC [Suspect]
     Indication: ACUTE MYOCARDIAL INFARCTION
     Dosage: ^2 TIMES^
     Route: 048
     Dates: start: 20041223, end: 20041228
  5. CLEXANE [Suspect]
     Indication: CORONARY ANGIOPLASTY
     Dosage: ^2 TIMES^
     Route: 058
     Dates: start: 20041225, end: 20041228
  6. ANTRA [Suspect]
     Indication: GASTRITIS
     Route: 048
     Dates: start: 20041225, end: 20041228

REACTIONS (1)
  - EXANTHEM [None]
